FAERS Safety Report 24889616 (Version 1)
Quarter: 2025Q1

REPORT INFORMATION
  Report Type: Spontaneous
  Country: US (occurrence: None)
  Receive Date: 20250124
  Receipt Date: 20250124
  Transmission Date: 20250408
  Serious: Yes (Other)
  Sender: FDA-CTU
  Company Number: None

PATIENT
  Age: 69 Year
  Sex: Male

DRUGS (1)
  1. SILDENAFIL [Suspect]
     Active Substance: SILDENAFIL
     Dosage: 50 MG DAILY ORAL
     Route: 048
     Dates: start: 20241224, end: 20241231

REACTIONS (3)
  - Cardiac disorder [None]
  - Discomfort [None]
  - Therapy cessation [None]

NARRATIVE: CASE EVENT DATE: 20241224
